FAERS Safety Report 10712563 (Version 2)
Quarter: 2015Q1

REPORT INFORMATION
  Report Type: Spontaneous
  Country: FR (occurrence: None)
  Receive Date: 20150112
  Receipt Date: 20150202
  Transmission Date: 20150721
  Serious: Yes (Life-Threatening, Hospitalization)
  Sender: FDA-Public Use
  Company Number: FR-2014-5044

PATIENT
  Age: 4 Month
  Sex: Female
  Weight: 6.58 kg

DRUGS (4)
  1. HEMANGIOL [Suspect]
     Active Substance: PROPRANOLOL HYDROCHLORIDE
     Route: 048
     Dates: start: 20140808
  2. XYLOCAINE [Suspect]
     Active Substance: LIDOCAINE HYDROCHLORIDE
     Indication: ANAESTHESIA
     Route: 054
     Dates: start: 20140930, end: 20141014
  3. DAKTARIN [Suspect]
     Active Substance: MICONAZOLE NITRATE
     Indication: PRODUCT USED FOR UNKNOWN INDICATION
  4. HEMANGIOL [Suspect]
     Active Substance: PROPRANOLOL HYDROCHLORIDE
     Indication: INFANTILE HAEMANGIOMA
     Route: 048
     Dates: start: 20140808

REACTIONS (16)
  - Aspartate aminotransferase increased [None]
  - Seizure [None]
  - Somnolence [None]
  - Gastroenteritis [None]
  - Respiratory arrest [None]
  - Diet refusal [None]
  - Blood pH decreased [None]
  - Coma [None]
  - Generalised tonic-clonic seizure [None]
  - Bradycardia [None]
  - Hypoglycaemia [None]
  - Eye disorder [None]
  - Blood alkaline phosphatase increased [None]
  - Nasopharyngitis [None]
  - Crying [None]
  - Cyanosis [None]

NARRATIVE: CASE EVENT DATE: 20141007
